FAERS Safety Report 6954691-1 (Version None)
Quarter: 2010Q3

REPORT INFORMATION
  Report Type: 
  Country: None (occurrence: None)
  Receive Date: 20100829
  Receipt Date: 20100820
  Transmission Date: 20110219
  Serious: No
  Sender: FDA-Public Use
  Company Number: US-US-EMD SERONO, INC.-7015425

PATIENT
  Sex: Female

DRUGS (4)
  1. REBIF [Suspect]
     Indication: MULTIPLE SCLEROSIS
     Route: 058
     Dates: start: 20100524, end: 20100712
  2. VIMPAT [Concomitant]
     Indication: CONVULSION
     Dates: start: 20100501
  3. AMPYRA [Concomitant]
     Dates: start: 20100501
  4. PERCOCET [Concomitant]
     Indication: PAIN

REACTIONS (2)
  - CONVULSION [None]
  - STRESS [None]
